FAERS Safety Report 18262202 (Version 2)
Quarter: 2020Q4

REPORT INFORMATION
  Report Type: Report from Study
  Country: CO (occurrence: CO)
  Receive Date: 20200914
  Receipt Date: 20201123
  Transmission Date: 20210113
  Serious: Yes (Hospitalization, Other)
  Sender: FDA-Public Use
  Company Number: CO-AMGEN-COLSL2019139460

PATIENT
  Age: 83 Year
  Sex: Female

DRUGS (2)
  1. NPLATE [Suspect]
     Active Substance: ROMIPLOSTIM
     Dosage: 250 MICROGRAM, QWK
     Route: 058
     Dates: start: 20180922
  2. NPLATE [Suspect]
     Active Substance: ROMIPLOSTIM
     Indication: IMMUNE THROMBOCYTOPENIA
     Dosage: 300 MICROGRAM, QWK
     Route: 058
     Dates: start: 20181027

REACTIONS (20)
  - Asphyxia [Not Recovered/Not Resolved]
  - Rhinorrhoea [Not Recovered/Not Resolved]
  - Abdominal pain upper [Not Recovered/Not Resolved]
  - Headache [Recovered/Resolved]
  - Influenza [Not Recovered/Not Resolved]
  - Hyperhidrosis [Not Recovered/Not Resolved]
  - Urine abnormality [Recovered/Resolved]
  - Ecchymosis [Recovered/Resolved]
  - Cough [Not Recovered/Not Resolved]
  - Body temperature decreased [Recovered/Resolved]
  - Faeces discoloured [Recovered/Resolved]
  - Adverse event [Recovered/Resolved]
  - Rash [Recovered/Resolved]
  - Dizziness [Not Recovered/Not Resolved]
  - Platelet count increased [Recovered/Resolved]
  - Haematoma [Recovered/Resolved]
  - Contusion [Not Recovered/Not Resolved]
  - Fatigue [Not Recovered/Not Resolved]
  - Flatulence [Not Recovered/Not Resolved]
  - Platelet count decreased [Recovered/Resolved]

NARRATIVE: CASE EVENT DATE: 2019
